FAERS Safety Report 6610427-5 (Version None)
Quarter: 2010Q1

REPORT INFORMATION
  Report Type: 
  Country: None (occurrence: None)
  Receive Date: 20100302
  Receipt Date: 20100224
  Transmission Date: 20100710
  Serious: Yes (Death)
  Sender: FDA-Public Use
  Company Number: US-CELGENEUS-163-21880-10022106

PATIENT
  Sex: Female

DRUGS (3)
  1. REVLIMID [Suspect]
     Indication: MULTIPLE MYELOMA
     Route: 048
     Dates: start: 20091001
  2. REVLIMID [Suspect]
     Route: 048
     Dates: start: 20090601
  3. REVLIMID [Suspect]
     Dosage: 15-25MG
     Route: 048
     Dates: start: 20071101

REACTIONS (1)
  - DEATH [None]
